FAERS Safety Report 4342655-6 (Version None)
Quarter: 2004Q1

REPORT INFORMATION
  Report Type: 
  Country: None (occurrence: None)
  Receive Date: 20040213
  Receipt Date: 20031105
  Transmission Date: 20041129
  Serious: Yes (Hospitalization)
  Sender: FDA-Public Use
  Company Number: 351023

PATIENT
  Age: 45 Year
  Sex: Male

DRUGS (2)
  1. PEGASYS [Suspect]
     Indication: HEPATITIS C
     Dosage: 180 MCG SUBCUTANEOUS
     Route: 058
     Dates: start: 20031004
  2. COPEGUS [Suspect]
     Indication: HEPATITIS C
     Dosage: 1200 MG DAILY, ORAL
     Route: 048
     Dates: start: 20031004

REACTIONS (11)
  - CHEST PAIN [None]
  - DISTURBANCE IN ATTENTION [None]
  - FATIGUE [None]
  - HEADACHE [None]
  - INSOMNIA [None]
  - NEURALGIA [None]
  - PAIN IN EXTREMITY [None]
  - PLATELET COUNT DECREASED [None]
  - RED BLOOD CELL COUNT DECREASED [None]
  - SKIN REACTION [None]
  - WHITE BLOOD CELL COUNT DECREASED [None]
